FAERS Safety Report 21170920 (Version 1)
Quarter: 2022Q3

REPORT INFORMATION
  Report Type: Spontaneous
  Country: US (occurrence: None)
  Receive Date: 20220803
  Receipt Date: 20220803
  Transmission Date: 20221027
  Serious: No
  Sender: FDA-Public Use
  Company Number: None

PATIENT
  Age: 36 Year
  Sex: Female

DRUGS (1)
  1. PROMACTA [Suspect]
     Active Substance: ELTROMBOPAG OLAMINE
     Indication: Immune thrombocytopenia
     Dosage: TAKE 2 TABLETS  BY MOUTH  DAILY ON EMPTY STOMACH AS DIRECTED?
     Route: 048
     Dates: start: 202201

REACTIONS (2)
  - COVID-19 [None]
  - Therapy cessation [None]
